FAERS Safety Report 11499950 (Version 1)
Quarter: 2015Q3

REPORT INFORMATION
  Report Type: Spontaneous
  Country: PK (occurrence: None)
  Receive Date: 20150910
  Receipt Date: 20150910
  Transmission Date: 20151125
  Serious: Yes (Hospitalization)
  Sender: FDA-Public Use
  Company Number: 2015-PEL-000583

PATIENT
  Age: 52 Year
  Sex: Male
  Weight: 88 kg

DRUGS (9)
  1. OXYGEN (OXYGEN) [Suspect]
     Active Substance: OXYGEN
     Indication: MAINTENANCE OF ANAESTHESIA
     Route: 055
  2. MORPHINE (MORPHINE) [Suspect]
     Active Substance: MORPHINE
     Indication: INDUCTION OF ANAESTHESIA
     Route: 042
  3. PROPOFOL (PROPOFOL) [Suspect]
     Active Substance: PROPOFOL
     Indication: GENERAL ANAESTHESIA
     Route: 042
  4. ISOFLURANE (ISOFLURANE) INJECTION [Suspect]
     Active Substance: ISOFLURANE
     Indication: MAINTENANCE OF ANAESTHESIA
     Route: 055
  5. NITROUS OXIDE (NITROUS OXIDE) [Suspect]
     Active Substance: NITROUS OXIDE
     Indication: MAINTENANCE OF ANAESTHESIA
     Route: 055
  6. PROPOFOL (PROPOFOL) [Suspect]
     Active Substance: PROPOFOL
     Indication: INDUCTION OF ANAESTHESIA
     Route: 042
  7. MORPHINE (MORPHINE) [Suspect]
     Active Substance: MORPHINE
     Indication: GENERAL ANAESTHESIA
     Route: 042
  8. ATRACURIUM (ATRACURIUM) [Suspect]
     Active Substance: ATRACURIUM
     Indication: GENERAL ANAESTHESIA
     Route: 042
  9. ATRACURIUM (ATRACURIUM) [Suspect]
     Active Substance: ATRACURIUM
     Indication: INDUCTION OF ANAESTHESIA
     Route: 042

REACTIONS (2)
  - Acute postoperative sialadenitis [None]
  - Procedural haemorrhage [None]
